FAERS Safety Report 17368663 (Version 2)
Quarter: 2024Q4

REPORT INFORMATION
  Report Type: Spontaneous
  Country: US (occurrence: US)
  Receive Date: 20200204
  Receipt Date: 20241104
  Transmission Date: 20250115
  Serious: No
  Sender: MERCK
  Company Number: US-009507513-2002USA000494

PATIENT
  Sex: Female

DRUGS (2)
  1. JANUMET [Suspect]
     Active Substance: METFORMIN HYDROCHLORIDE\SITAGLIPTIN PHOSPHATE
     Route: 048
  2. DECADRON [Suspect]
     Active Substance: DEXAMETHASONE
     Dosage: UNK
     Dates: end: 201910

REACTIONS (5)
  - Muscle atrophy [Unknown]
  - Eye disorder [Unknown]
  - Blood glucose increased [Unknown]
  - Magnetic resonance imaging [Unknown]
  - Product dose omission issue [Unknown]

NARRATIVE: CASE EVENT DATE: 20190101
